APPROVED DRUG PRODUCT: DOXEPIN HYDROCHLORIDE
Active Ingredient: DOXEPIN HYDROCHLORIDE
Strength: EQ 75MG BASE
Dosage Form/Route: CAPSULE;ORAL
Application: A214908 | Product #004 | TE Code: AB
Applicant: APPCO PHARMA LLC
Approved: Apr 1, 2021 | RLD: No | RS: No | Type: RX